FAERS Safety Report 7671983-1 (Version None)
Quarter: 2011Q3

REPORT INFORMATION
  Report Type: 
  Country: None (occurrence: None)
  Receive Date: 20110809
  Receipt Date: 20110729
  Transmission Date: 20111222
  Serious: No
  Sender: FDA-Public Use
  Company Number: JP-JNJFOC-20110800040

PATIENT
  Age: 65 Year
  Sex: Male

DRUGS (9)
  1. FENTANYL CITRATE [Suspect]
     Route: 062
     Dates: start: 20110216
  2. LANSOPRAZOLE [Concomitant]
     Route: 048
  3. FENTANYL CITRATE [Suspect]
     Dosage: 2 PATCHES OF 12.5 UG/HR AND 1 PATCH OF 25 UG/HR
     Route: 062
     Dates: start: 20110725
  4. PANVITAN [Concomitant]
     Route: 048
  5. SENNOSIDE [Concomitant]
     Route: 048
  6. OXYCODONE HYDROCHLORIDE [Concomitant]
     Route: 048
  7. FENTANYL CITRATE [Suspect]
     Indication: CANCER PAIN
     Dosage: 1 PATCH OF 12.5 UG/HR AND 1 PATCH OF 25 UG/HR
     Route: 062
     Dates: end: 20110725
  8. DECADRON [Concomitant]
     Route: 048
  9. MAGNESIUM SULFATE [Concomitant]
     Route: 048

REACTIONS (3)
  - APPLICATION SITE PRURITUS [None]
  - INAPPROPRIATE SCHEDULE OF DRUG ADMINISTRATION [None]
  - PRURITUS [None]
